FAERS Safety Report 19432475 (Version 1)
Quarter: 2021Q2

REPORT INFORMATION
  Report Type: Spontaneous
  Country: US (occurrence: US)
  Receive Date: 20210618
  Receipt Date: 20210618
  Transmission Date: 20210717
  Serious: Yes (Other)
  Sender: FDA-Public Use
  Company Number: US-JNJFOC-20210626225

PATIENT
  Age: 8 Decade
  Sex: Male
  Weight: 100.33 kg

DRUGS (8)
  1. FINASTERIDE. [Concomitant]
     Active Substance: FINASTERIDE
     Indication: PRODUCT USED FOR UNKNOWN INDICATION
  2. COENZYME Q10 [Concomitant]
     Active Substance: DIETARY SUPPLEMENT\UBIDECARENONE
     Indication: PRODUCT USED FOR UNKNOWN INDICATION
  3. XARELTO [Suspect]
     Active Substance: RIVAROXABAN
     Indication: PRODUCT USED FOR UNKNOWN INDICATION
     Route: 048
     Dates: start: 20180830
  4. VITAMIN D3 [Concomitant]
     Active Substance: CHOLECALCIFEROL
     Indication: PRODUCT USED FOR UNKNOWN INDICATION
  5. ZINC. [Concomitant]
     Active Substance: ZINC
     Indication: PRODUCT USED FOR UNKNOWN INDICATION
  6. GLUTATHIONE [Concomitant]
     Active Substance: GLUTATHIONE
     Indication: PRODUCT USED FOR UNKNOWN INDICATION
  7. XARELTO [Suspect]
     Active Substance: RIVAROXABAN
     Route: 048
  8. VITAMIN C COMPLEX [ASCORBIC ACID;RUTOSIDE] [Concomitant]
     Active Substance: ASCORBIC ACID\RUTIN

REACTIONS (4)
  - Cystitis radiation [Unknown]
  - Headache [Unknown]
  - Haemorrhage urinary tract [Not Recovered/Not Resolved]
  - Testicular torsion [Unknown]

NARRATIVE: CASE EVENT DATE: 2021
